FAERS Safety Report 8782901 (Version 1)
Quarter: 2012Q4

REPORT INFORMATION
  Report Type: 
  Country: BR (occurrence: BR)
  Receive Date: 20120913
  Receipt Date: 20120913
  Transmission Date: 20130627
  Serious: Yes (Other)
  Sender: FDA-Public Use
  Company Number: BR-ASTRAZENECA-2012SE69890

PATIENT
  Sex: Female
  Weight: 74 kg

DRUGS (8)
  1. ATACAND [Suspect]
     Indication: HYPERTENSION
     Route: 048
     Dates: start: 20120615, end: 201208
  2. ATACAND [Suspect]
     Indication: HYPERTENSION
     Route: 048
     Dates: start: 201208
  3. ASA [Suspect]
     Route: 048
     Dates: start: 20120615, end: 201208
  4. CONCOR [Suspect]
     Route: 048
     Dates: start: 20120615, end: 201208
  5. CONCOR [Suspect]
     Route: 048
     Dates: start: 201208
  6. ANAFRANIL [Suspect]
     Indication: DEPRESSION
     Route: 048
     Dates: start: 2002, end: 201208
  7. ALPRAZOLAM [Concomitant]
     Route: 048
     Dates: start: 2007
  8. SPIROLACTONE [Concomitant]
     Route: 048
     Dates: start: 20120615

REACTIONS (3)
  - Cardiomyopathy [Unknown]
  - Blood pressure increased [Recovered/Resolved]
  - Drug ineffective [Recovered/Resolved]
